FAERS Safety Report 6003098-2 (Version None)
Quarter: 2008Q4

REPORT INFORMATION
  Report Type: 
  Country: None (occurrence: None)
  Receive Date: 20081216
  Receipt Date: 20081209
  Transmission Date: 20090506
  Serious: Yes (Hospitalization)
  Sender: FDA-Public Use
  Company Number: BR-BAYER-200822375LA

PATIENT
  Age: 27 Year
  Sex: Female
  Weight: 63 kg

DRUGS (1)
  1. BETAFERON [Suspect]
     Indication: MULTIPLE SCLEROSIS
     Route: 058
     Dates: start: 20040601

REACTIONS (8)
  - ABDOMINAL PAIN [None]
  - INJECTION SITE ERYTHEMA [None]
  - INJECTION SITE NECROSIS [None]
  - INJECTION SITE PAIN [None]
  - LOCAL SWELLING [None]
  - RASH [None]
  - SEPSIS [None]
  - VAGINAL DISCHARGE [None]
